FAERS Safety Report 8583756-6 (Version None)
Quarter: 2012Q3

REPORT INFORMATION
  Report Type: 
  Country: None (occurrence: None)
  Receive Date: 20120810
  Receipt Date: 20120723
  Transmission Date: 20120928
  Serious: Yes (Hospitalization, Disabling, Other)
  Sender: FDA-Public Use
  Company Number: US-009507513-1203USA03315

PATIENT

DRUGS (8)
  1. RALOXIFENE HYDROCHLORIDE [Concomitant]
     Dosage: 60 MG, QD
     Dates: end: 20090306
  2. CALCIUM (UNSPECIFIED) [Concomitant]
     Indication: OSTEOPENIA
  3. FOSAMAX PLUS D [Suspect]
     Indication: OSTEOPENIA
     Dosage: UNK
     Route: 048
     Dates: start: 20060501, end: 20080201
  4. FLUTICASONE PROPIONATE [Concomitant]
     Indication: HYPERSENSITIVITY
     Dosage: UNK
  5. FOSAMAX [Suspect]
     Dosage: 10 MG, QD
     Dates: start: 19961104
  6. IPRATROPIUM BROMIDE [Concomitant]
     Indication: HYPERSENSITIVITY
     Dosage: UNK
     Dates: start: 20020101
  7. FOSAMAX [Suspect]
     Indication: OSTEOPENIA
     Dosage: 70 MG, UNK
     Route: 048
     Dates: start: 19970801, end: 20060501
  8. FLONASE [Concomitant]
     Indication: HYPERSENSITIVITY

REACTIONS (37)
  - VITAMIN D DEFICIENCY [None]
  - MEDICAL DEVICE DISCOMFORT [None]
  - FEMUR FRACTURE [None]
  - OVARIAN DISORDER [None]
  - SMEAR CERVIX ABNORMAL [None]
  - MUSCULOSKELETAL DISORDER [None]
  - OSTEOARTHRITIS [None]
  - FOOT DEFORMITY [None]
  - HYPERCHOLESTEROLAEMIA [None]
  - VAGINAL INFECTION [None]
  - BARTHOLIN'S CYST [None]
  - URINARY INCONTINENCE [None]
  - RASH [None]
  - ARTHRITIS [None]
  - CONTUSION [None]
  - ESSENTIAL HYPERTENSION [None]
  - PELVIC FLUID COLLECTION [None]
  - BLISTER [None]
  - GINGIVAL DISORDER [None]
  - FALL [None]
  - LOW TURNOVER OSTEOPATHY [None]
  - TENDERNESS [None]
  - GAIT DISTURBANCE [None]
  - NODULE [None]
  - DIARRHOEA [None]
  - STRESS FRACTURE [None]
  - ENDOMETRIOSIS [None]
  - SPINAL OSTEOARTHRITIS [None]
  - DEEP VEIN THROMBOSIS [None]
  - JOINT STIFFNESS [None]
  - HERPES VIRUS INFECTION [None]
  - FAECAL INCONTINENCE [None]
  - OSTEOPOROSIS [None]
  - ANGIOPATHY [None]
  - POLLAKIURIA [None]
  - PAIN IN EXTREMITY [None]
  - GASTROOESOPHAGEAL REFLUX DISEASE [None]
